FAERS Safety Report 7840789-2 (Version None)
Quarter: 2011Q4

REPORT INFORMATION
  Report Type: 
  Country: None (occurrence: None)
  Receive Date: 20111021
  Receipt Date: 20111021
  Transmission Date: 20120403
  Serious: Yes (Other)
  Sender: FDA-Public Use
  Company Number: None

PATIENT
  Sex: Male

DRUGS (1)
  1. ADCIRCA [Suspect]
     Indication: PULMONARY ARTERIAL HYPERTENSION
     Dosage: 40 MG QD PO
     Route: 048
     Dates: start: 20110828

REACTIONS (3)
  - DYSPNOEA [None]
  - UNRESPONSIVE TO STIMULI [None]
  - ATRIAL FIBRILLATION [None]
